FAERS Safety Report 23363938 (Version 3)
Quarter: 2024Q1

REPORT INFORMATION
  Report Type: Spontaneous
  Country: US (occurrence: US)
  Receive Date: 20240104
  Receipt Date: 20240328
  Transmission Date: 20240410
  Serious: Yes (Other)
  Sender: FDA-Public Use
  Company Number: US-BRISTOL-MYERS SQUIBB COMPANY-2024-000851

PATIENT
  Age: 60 Year
  Sex: Female

DRUGS (1)
  1. REVLIMID [Suspect]
     Active Substance: LENALIDOMIDE
     Indication: Plasma cell myeloma
     Dosage: TAKE 1CAPSULE (10MG) BY MOUTH 1 TIME A DAY FOR 21 DAYS ON AND 7 DAYS OF
     Route: 048
     Dates: start: 202312

REACTIONS (11)
  - Erythema [Unknown]
  - Feeling hot [Unknown]
  - Swelling face [Unknown]
  - Dry throat [Unknown]
  - Throat irritation [Unknown]
  - Sensory disturbance [Unknown]
  - Pneumonia [Unknown]
  - Paranasal sinus hypersecretion [Unknown]
  - Muscle fatigue [Unknown]
  - Muscle tightness [Unknown]
  - Nausea [Unknown]
